FAERS Safety Report 21400184 (Version 1)
Quarter: 2022Q4

REPORT INFORMATION
  Report Type: Spontaneous
  Country: JP (occurrence: JP)
  Receive Date: 20221002
  Receipt Date: 20221002
  Transmission Date: 20230113
  Serious: Yes (Other)
  Sender: FDA-Public Use
  Company Number: JP-CELGENE-JPN-20211101205

PATIENT
  Age: 66 Year
  Sex: Male

DRUGS (18)
  1. REVLIMID [Suspect]
     Active Substance: LENALIDOMIDE
     Indication: Adult T-cell lymphoma/leukaemia
     Dosage: FREQUENCY TEXT: UNKNOWN
     Route: 048
     Dates: start: 2019, end: 2019
  2. REVLIMID [Suspect]
     Active Substance: LENALIDOMIDE
     Dosage: FREQUENCY TEXT: UNKNOWN
     Route: 048
     Dates: start: 2019, end: 201911
  3. REVLIMID [Suspect]
     Active Substance: LENALIDOMIDE
     Dosage: FREQUENCY TEXT: UNKNOWN
     Route: 048
     Dates: start: 201911, end: 2020
  4. REVLIMID [Suspect]
     Active Substance: LENALIDOMIDE
     Dosage: FREQUENCY TEXT: UNKNOWN
     Route: 048
     Dates: start: 202009, end: 2020
  5. REVLIMID [Suspect]
     Active Substance: LENALIDOMIDE
     Dosage: FREQUENCY TEXT: UNKNOWN
     Route: 048
     Dates: start: 2020
  6. PREDNISOLONE [Concomitant]
     Active Substance: PREDNISOLONE
     Indication: Adult T-cell lymphoma/leukaemia
     Dosage: FREQUENCY TEXT: UNKNOWN?UNKNOWN
     Route: 065
  7. PREDNISOLONE [Concomitant]
     Active Substance: PREDNISOLONE
     Indication: Product used for unknown indication
     Dosage: FREQUENCY TEXT: UNKNOWN?UNKNOWN
     Route: 065
  8. PREDNISOLONE [Concomitant]
     Active Substance: PREDNISOLONE
     Dosage: FREQUENCY TEXT: UNKNOWN?UNKNOWN
     Route: 065
  9. PREDNISOLONE [Concomitant]
     Active Substance: PREDNISOLONE
     Dosage: FREQUENCY TEXT: UNKNOWN?UNKNOWN
     Route: 065
  10. PREDNISOLONE [Concomitant]
     Active Substance: PREDNISOLONE
     Dosage: FREQUENCY TEXT: UNKNOWN
     Route: 065
     Dates: start: 2019, end: 2019
  11. PREDNISOLONE [Concomitant]
     Active Substance: PREDNISOLONE
     Dosage: FREQUENCY TEXT: UNKNOWN?DOSE TAPERED
     Route: 065
     Dates: start: 2019, end: 2019
  12. PREDNISOLONE [Concomitant]
     Active Substance: PREDNISOLONE
     Dosage: FREQUENCY TEXT: UNKNOWN
     Route: 065
     Dates: end: 2020
  13. PREDNISOLONE [Concomitant]
     Active Substance: PREDNISOLONE
     Dosage: FREQUENCY TEXT: UNKNOWN?DOSE TAPERED
     Route: 065
     Dates: start: 2020, end: 2020
  14. PREDNISOLONE [Concomitant]
     Active Substance: PREDNISOLONE
     Dosage: FREQUENCY TEXT: UNKNOWN
     Route: 065
     Dates: start: 202007, end: 2020
  15. PREDNISOLONE [Concomitant]
     Active Substance: PREDNISOLONE
     Dosage: FREQUENCY TEXT: UNKNOWN?DOSE TAPERED
     Route: 065
     Dates: start: 2020, end: 202011
  16. PREDNISOLONE [Concomitant]
     Active Substance: PREDNISOLONE
     Dosage: FREQUENCY TEXT: UNKNOWN
     Route: 065
     Dates: start: 202011, end: 2021
  17. PREDNISOLONE [Concomitant]
     Active Substance: PREDNISOLONE
     Dosage: FREQUENCY TEXT: UNKNOWN
     Route: 065
     Dates: start: 2021
  18. PREDNISOLONE [Concomitant]
     Active Substance: PREDNISOLONE
     Dosage: FREQUENCY TEXT: UNKNOWN?UNKNOWN
     Route: 061
     Dates: start: 2019

REACTIONS (9)
  - Pancreatitis acute [Unknown]
  - Organising pneumonia [Unknown]
  - Lymphadenopathy [Unknown]
  - Splenomegaly [Unknown]
  - Lymphadenopathy [Unknown]
  - Splenomegaly [Unknown]
  - Adult T-cell lymphoma/leukaemia [Unknown]
  - Rash [Recovering/Resolving]
  - Neutrophil count decreased [Unknown]

NARRATIVE: CASE EVENT DATE: 20190901
